FAERS Safety Report 24995097 (Version 1)
Quarter: 2025Q1

REPORT INFORMATION
  Report Type: Report from Study
  Country: CA (occurrence: CA)
  Receive Date: 20250221
  Receipt Date: 20250221
  Transmission Date: 20250408
  Serious: Yes (Disabling, Other)
  Sender: BIOCON
  Company Number: CA-MYLANLABS-2022M1086907

PATIENT

DRUGS (2)
  1. HULIO [Suspect]
     Active Substance: ADALIMUMAB-FKJP
     Indication: Colitis ulcerative
     Route: 058
  2. HULIO [Suspect]
     Active Substance: ADALIMUMAB-FKJP
     Route: 058
     Dates: start: 20210901

REACTIONS (5)
  - Loss of personal independence in daily activities [Unknown]
  - Colitis [Unknown]
  - Discomfort [Unknown]
  - Bowel movement irregularity [Recovering/Resolving]
  - Off label use [Unknown]

NARRATIVE: CASE EVENT DATE: 20210901
